FAERS Safety Report 15426467 (Version 13)
Quarter: 2019Q4

REPORT INFORMATION
  Report Type: Spontaneous
  Country: TW (occurrence: TW)
  Receive Date: 20180925
  Receipt Date: 20191129
  Transmission Date: 20200122
  Serious: Yes (Hospitalization, Other)
  Sender: FDA-Public Use
  Company Number: TW-PFIZER INC-2018379071

PATIENT
  Age: 79 Year
  Sex: Male

DRUGS (3)
  1. SUTENT [Suspect]
     Active Substance: SUNITINIB MALATE
     Indication: RENAL CELL CARCINOMA
     Dosage: 50 MG, CYCLIC (DAILY, FOUR WEEKS ON AND TWO WEEKS OFF)
     Route: 048
     Dates: start: 20171123, end: 201803
  2. SUTENT [Suspect]
     Active Substance: SUNITINIB MALATE
     Dosage: 37.5 MG, CYCLIC (DAILY, FOUR WEEKS ON AND TWO WEEKS OFF)
     Route: 048
     Dates: start: 20180314, end: 201808
  3. SUTENT [Suspect]
     Active Substance: SUNITINIB MALATE
     Dosage: 37.5 MG, CYCLIC (DAILY, TWO WEEKS ON AND ONE WEEK OFF)
     Route: 048
     Dates: start: 20180828

REACTIONS (30)
  - Oral pain [Not Recovered/Not Resolved]
  - Hypertension [Not Recovered/Not Resolved]
  - Skin discolouration [Not Recovered/Not Resolved]
  - Blood urea increased [Not Recovered/Not Resolved]
  - Blood lactate dehydrogenase increased [Not Recovered/Not Resolved]
  - Platelet count decreased [Not Recovered/Not Resolved]
  - Neutropenia [Not Recovered/Not Resolved]
  - Decreased appetite [Not Recovered/Not Resolved]
  - White blood cell count decreased [Not Recovered/Not Resolved]
  - Abdominal discomfort [Not Recovered/Not Resolved]
  - Blood alkaline phosphatase increased [Recovered/Resolved]
  - Muscular weakness [Not Recovered/Not Resolved]
  - Alopecia [Not Recovered/Not Resolved]
  - Epistaxis [Recovered/Resolved]
  - Anaemia [Not Recovered/Not Resolved]
  - Fatigue [Not Recovered/Not Resolved]
  - Blood creatinine increased [Not Recovered/Not Resolved]
  - Alanine aminotransferase increased [Recovered/Resolved]
  - Atrial fibrillation [Not Recovered/Not Resolved]
  - Hyperkalaemia [Not Recovered/Not Resolved]
  - Purulence [Recovered/Resolved]
  - Hypoalbuminaemia [Not Recovered/Not Resolved]
  - Hyponatraemia [Recovered/Resolved]
  - Aspartate aminotransferase increased [Not Recovered/Not Resolved]
  - Periorbital oedema [Not Recovered/Not Resolved]
  - Oedema peripheral [Not Recovered/Not Resolved]
  - Vomiting [Not Recovered/Not Resolved]
  - Proteinuria [Not Recovered/Not Resolved]
  - Hypothyroidism [Not Recovered/Not Resolved]
  - Diarrhoea [Not Recovered/Not Resolved]

NARRATIVE: CASE EVENT DATE: 20171221
